FAERS Safety Report 5748709-1 (Version None)
Quarter: 2008Q2

REPORT INFORMATION
  Report Type: 
  Country: None (occurrence: None)
  Receive Date: 20080521
  Receipt Date: 20080512
  Transmission Date: 20081010
  Serious: Yes (Hospitalization, Other)
  Sender: FDA-Public Use
  Company Number: 82077

PATIENT
  Age: 53 Year
  Sex: Female

DRUGS (6)
  1. ACETAMINOPHEN [Suspect]
     Indication: INTENTIONAL OVERDOSE
     Dosage: 4-5 TABLETS/ONCE/ORALLY
     Route: 048
  2. LYRICA [Suspect]
     Indication: INTENTIONAL OVERDOSE
     Dosage: 100 MG/20 TABLETS/X1/ORALLY
     Route: 048
     Dates: end: 20080417
  3. AMLODIPINE [Concomitant]
  4. ATENOLOL [Concomitant]
  5. SIMVASTATIN [Concomitant]
  6. TRAZODONE HCL [Concomitant]

REACTIONS (3)
  - ALCOHOL USE [None]
  - BLOOD CREATINE PHOSPHOKINASE INCREASED [None]
  - OVERDOSE [None]
